FAERS Safety Report 8580107-8 (Version None)
Quarter: 2012Q3

REPORT INFORMATION
  Report Type: 
  Country: None (occurrence: None)
  Receive Date: 20120808
  Receipt Date: 20120803
  Transmission Date: 20120928
  Serious: Yes (Other)
  Sender: FDA-Public Use
  Company Number: JP-PFIZER INC-2012179297

PATIENT
  Age: 76 Year
  Sex: Male

DRUGS (5)
  1. LYRICA [Suspect]
     Indication: PAIN
     Dosage: 75 MG, 2X/DAY
     Route: 048
     Dates: start: 20110301
  2. FLIVAS [Concomitant]
     Dosage: UNK
     Dates: start: 20120301, end: 20120101
  3. URIEF [Concomitant]
     Dosage: UNK
  4. UBRETID [Concomitant]
     Dosage: UNK
     Dates: start: 20120301, end: 20120101
  5. LYRICA [Suspect]
     Indication: DIABETIC NEUROPATHY

REACTIONS (2)
  - URINARY RETENTION [None]
  - PERIPHERAL VASCULAR DISORDER [None]
